FAERS Safety Report 8248443-2 (Version None)
Quarter: 2012Q1

REPORT INFORMATION
  Report Type: 
  Country: None (occurrence: None)
  Receive Date: 20120330
  Receipt Date: 20120322
  Transmission Date: 20120608
  Serious: Yes (Other)
  Sender: FDA-Public Use
  Company Number: US-ELI_LILLY_AND_COMPANY-US201202000523

PATIENT
  Sex: Female

DRUGS (4)
  1. FORTEO [Suspect]
     Dosage: 20 UG, QD
     Route: 065
     Dates: end: 20120308
  2. ANTIFUNGALS [Concomitant]
  3. FORTEO [Suspect]
     Dosage: 20 UG, QD
     Route: 065
     Dates: start: 20120312, end: 20120301
  4. FORTEO [Suspect]
     Indication: OSTEOPOROSIS
     Dosage: 20 UG, QD
     Route: 065
     Dates: start: 20111201

REACTIONS (17)
  - EATING DISORDER [None]
  - ARTHRALGIA [None]
  - RASH PRURITIC [None]
  - FATIGUE [None]
  - STRESS [None]
  - MUSCLE SPASMS [None]
  - DRUG DOSE OMISSION [None]
  - POSTURE ABNORMAL [None]
  - HEADACHE [None]
  - PELVIC FRACTURE [None]
  - INSOMNIA [None]
  - NAUSEA [None]
  - NEURALGIA [None]
  - SPINAL DISORDER [None]
  - HYPERHIDROSIS [None]
  - GAIT DISTURBANCE [None]
  - COUGH [None]
